FAERS Safety Report 15699324 (Version 1)
Quarter: 2018Q4

REPORT INFORMATION
  Report Type: Spontaneous
  Country: CH (occurrence: CH)
  Receive Date: 20181207
  Receipt Date: 20181207
  Transmission Date: 20190205
  Serious: Yes (Hospitalization)
  Sender: FDA-Public Use
  Company Number: PHHY2018CH173742

PATIENT
  Age: 45 Year
  Sex: Female

DRUGS (1)
  1. QUETIAPINE. [Suspect]
     Active Substance: QUETIAPINE
     Indication: PRODUCT USED FOR UNKNOWN INDICATION
     Route: 065

REACTIONS (8)
  - Pancreatitis [Unknown]
  - Necrotising colitis [Recovered/Resolved]
  - Septic shock [Recovered/Resolved]
  - Thrombosis [Unknown]
  - Colitis [Recovered/Resolved]
  - Necrosis ischaemic [Unknown]
  - Gastric dilatation [Recovered/Resolved]
  - Constipation [Recovered/Resolved]
